FAERS Safety Report 9572509 (Version 1)
Quarter: 2013Q1

REPORT INFORMATION
  Report Type: Spontaneous
  Country: US (occurrence: None)
  Receive Date: 20120809
  Receipt Date: 20120809
  Transmission Date: 20140127
  Serious: Yes (Death)
  Sender: FDA-Public Use
  Company Number: 26559

PATIENT
  Age: 37 Year
  Sex: Female
  Weight: 131.54 kg

DRUGS (32)
  1. GLASSIA [Suspect]
     Route: 042
     Dates: start: 20110712, end: 201109
  2. LAMICTAL [Concomitant]
  3. VITAMIN D [Concomitant]
  4. GEODON [Concomitant]
  5. ATROVENT [Concomitant]
  6. ALBUTEROL SULFATE [Concomitant]
  7. SOMA [Concomitant]
  8. XANAX [Concomitant]
  9. FIORICET [Concomitant]
  10. FLOVEN HFA [Concomitant]
  11. IMITREX [Concomitant]
  12. DUONEB [Concomitant]
  13. MUCINEX D [Concomitant]
  14. PHOSLO [Concomitant]
  15. TOPAMAX [Concomitant]
  16. VITAMIN C [Concomitant]
  17. VITAMIN E [Concomitant]
  18. ASTELIN [Concomitant]
  19. REGLAN [Concomitant]
  20. OXYCONTIN [Concomitant]
  21. PROVENTIL HFA [Concomitant]
  22. CELEXA [Concomitant]
  23. FLUTICASONE FUROATE [Concomitant]
  24. B12 [Concomitant]
  25. CALCIUM [Concomitant]
  26. GLASSIA INFUSION [Concomitant]
  27. ROFLUMILAST [Concomitant]
  28. VITAMIN A DAILY [Concomitant]
  29. ADVAIR DISKUS [Concomitant]
  30. RANITIDINE HCL [Concomitant]
  31. PREDNISON [Concomitant]
  32. VERAPAMIL HCL [Concomitant]

REACTIONS (1)
  - Chronic obstructive pulmonary disease [None]
